FAERS Safety Report 12372621 (Version 1)
Quarter: 2016Q2

REPORT INFORMATION
  Report Type: Report from Study
  Country: US (occurrence: US)
  Receive Date: 20160516
  Receipt Date: 20160516
  Transmission Date: 20160815
  Serious: Yes (Other)
  Sender: FDA-Public Use
  Company Number: US-MALLINCKRODT-T201601654

PATIENT
  Age: 51 Year
  Sex: Female
  Weight: 89 kg

DRUGS (6)
  1. OMEPRAZOLE. [Concomitant]
     Active Substance: OMEPRAZOLE
  2. REPOSITORY CORTICOTROPIN INJECTION [Suspect]
     Active Substance: CORTICOTROPIN
     Indication: MULTIPLE SCLEROSIS RELAPSE
     Dosage: 1 ML DAILY ^FOR DAYS^
     Route: 058
     Dates: start: 20160409, end: 20160409
  3. METOPROLOL. [Concomitant]
     Active Substance: METOPROLOL
  4. GABAPENTIN. [Concomitant]
     Active Substance: GABAPENTIN
  5. BACLOFEN. [Concomitant]
     Active Substance: BACLOFEN
  6. SYNTHROID [Concomitant]
     Active Substance: LEVOTHYROXINE SODIUM

REACTIONS (3)
  - Decreased appetite [Unknown]
  - Seizure [Recovered/Resolved]
  - Loss of consciousness [Recovered/Resolved]

NARRATIVE: CASE EVENT DATE: 20160409
